FAERS Safety Report 5797518-6 (Version None)
Quarter: 2008Q3

REPORT INFORMATION
  Report Type: 
  Country: None (occurrence: None)
  Receive Date: 20080702
  Receipt Date: 20080627
  Transmission Date: 20090109
  Serious: Yes (Other)
  Sender: FDA-Public Use
  Company Number: GB-RANBAXY-2008RR-16119

PATIENT

DRUGS (6)
  1. DICLOFENAC SODIUM [Suspect]
     Indication: OSTEOARTHRITIS
     Dosage: 75 MG, BID
     Route: 048
     Dates: start: 20071119, end: 20080114
  2. DICLOFENAC SODIUM [Suspect]
     Indication: BONE PAIN
  3. MELOXICAM [Suspect]
     Indication: OSTEOARTHRITIS
     Dosage: 15 MG, UNK
     Route: 048
     Dates: start: 20080116, end: 20080208
  4. MELOXICAM [Suspect]
     Indication: BONE PAIN
  5. BENDROFLUMETHIAZIDE [Concomitant]
     Indication: HYPERTENSION
     Dosage: 2.5 MG, UNK
     Route: 048
     Dates: start: 20040101
  6. DOXAZOSIN MESYLATE [Concomitant]
     Indication: HYPERTENSION
     Dosage: 8 MG, UNK
     Route: 048
     Dates: start: 20061101

REACTIONS (2)
  - DIVERTICULUM [None]
  - RECTAL HAEMORRHAGE [None]
